FAERS Safety Report 18411486 (Version 1)
Quarter: 2020Q4

REPORT INFORMATION
  Report Type: Other
  Country: FR (occurrence: FR)
  Receive Date: 20201021
  Receipt Date: 20201021
  Transmission Date: 20210114
  Serious: Yes (Hospitalization)
  Sender: FDA-Public Use
  Company Number: FR-VALIDUS PHARMACEUTICALS LLC-FR-2020VAL000824

PATIENT

DRUGS (4)
  1. CEFOTAXIME SODIUM [Suspect]
     Active Substance: CEFOTAXIME SODIUM
     Indication: OSTEOMYELITIS
     Dosage: 2 G, QD
     Route: 042
     Dates: start: 20200528, end: 20200528
  2. METRONIDAZOLE. [Suspect]
     Active Substance: METRONIDAZOLE
     Indication: OSTEOMYELITIS
     Dosage: 500 MG, TID
     Route: 042
     Dates: start: 20200528, end: 20200608
  3. CEFTAZIDIME. [Suspect]
     Active Substance: CEFTAZIDIME
     Indication: OSTEOMYELITIS
     Dosage: 6 G, QD
     Route: 042
     Dates: start: 20200528, end: 20200608
  4. VANCOMYCINE                        /00314401/ [Suspect]
     Active Substance: VANCOMYCIN
     Indication: OSTEOMYELITIS
     Dosage: 2.4 G, QD
     Route: 042
     Dates: start: 20200528, end: 20200608

REACTIONS (2)
  - Rash maculo-papular [Not Recovered/Not Resolved]
  - Pyrexia [Not Recovered/Not Resolved]

NARRATIVE: CASE EVENT DATE: 20200608
